FAERS Safety Report 13137131 (Version 1)
Quarter: 2017Q1

REPORT INFORMATION
  Report Type: Spontaneous
  Country: LT (occurrence: LT)
  Receive Date: 20170123
  Receipt Date: 20170123
  Transmission Date: 20170428
  Serious: Yes (Hospitalization)
  Sender: FDA-Public Use
  Company Number: LT-ACCORD-047478

PATIENT
  Age: 69 Year
  Sex: Female

DRUGS (1)
  1. GEMCITABINE/GEMCITABINE HYDROCHLORIDE [Suspect]
     Active Substance: GEMCITABINE\GEMCITABINE HYDROCHLORIDE
     Indication: PANCREATIC CARCINOMA
     Dates: end: 20160803

REACTIONS (4)
  - Haemodialysis [None]
  - Leukocytosis [Unknown]
  - Thrombotic microangiopathy [Unknown]
  - Haemolytic uraemic syndrome [None]
